FAERS Safety Report 19738871 (Version 1)
Quarter: 2021Q3

REPORT INFORMATION
  Report Type: Spontaneous
  Country: CZ (occurrence: CZ)
  Receive Date: 20210824
  Receipt Date: 20210824
  Transmission Date: 20211014
  Serious: Yes (Hospitalization, Other)
  Sender: FDA-Public Use
  Company Number: CZ-BRISTOL-MYERS SQUIBB COMPANY-BMS-2021-082286

PATIENT
  Age: 74 Year

DRUGS (6)
  1. YERVOY [Suspect]
     Active Substance: IPILIMUMAB
     Dosage: SECOND DOSE
     Route: 065
     Dates: start: 20210105
  2. YERVOY [Suspect]
     Active Substance: IPILIMUMAB
     Dosage: THIRD DOSE
     Route: 065
     Dates: start: 20210125
  3. OPDIVO [Suspect]
     Active Substance: NIVOLUMAB
     Dosage: SECOND DOSE
     Route: 065
     Dates: start: 20210105
  4. YERVOY [Suspect]
     Active Substance: IPILIMUMAB
     Indication: MALIGNANT MELANOMA
     Dosage: FIRST DOSE
     Route: 065
     Dates: start: 20201214
  5. OPDIVO [Suspect]
     Active Substance: NIVOLUMAB
     Indication: MALIGNANT MELANOMA
     Dosage: FIRST DOSE
     Route: 065
     Dates: start: 20201214
  6. OPDIVO [Suspect]
     Active Substance: NIVOLUMAB
     Dosage: THIRD DOSE
     Route: 065
     Dates: start: 20210125

REACTIONS (3)
  - Immune-mediated hypothyroidism [Unknown]
  - Hyperthyroidism [Unknown]
  - Hepatorenal failure [Unknown]

NARRATIVE: CASE EVENT DATE: 20210105
